FAERS Safety Report 23181710 (Version 2)
Quarter: 2023Q4

REPORT INFORMATION
  Report Type: Spontaneous
  Country: CH (occurrence: CH)
  Receive Date: 20231114
  Receipt Date: 20231205
  Transmission Date: 20240109
  Serious: Yes (Other)
  Sender: FDA-Public Use
  Company Number: CH-ORGANON-O2311CHE000769

PATIENT
  Age: 20 Year
  Sex: Female

DRUGS (1)
  1. ETONOGESTREL [Suspect]
     Active Substance: ETONOGESTREL
     Indication: Contraception
     Dosage: 1 IMPLANT, IN LEFT UPPER ARM
     Route: 058
     Dates: start: 20231005, end: 20231030

REACTIONS (4)
  - Device expulsion [Recovered/Resolved]
  - Device dislocation [Recovered/Resolved]
  - Implant site erythema [Unknown]
  - Complication associated with device [Recovered/Resolved]

NARRATIVE: CASE EVENT DATE: 20231001
